FAERS Safety Report 15215415 (Version 2)
Quarter: 2018Q3

REPORT INFORMATION
  Report Type: Spontaneous
  Country: JP (occurrence: JP)
  Receive Date: 20180730
  Receipt Date: 20180807
  Transmission Date: 20181010
  Serious: Yes (Hospitalization, Other)
  Sender: FDA-Public Use
  Company Number: JP-SANIK-2018SA197662AA

PATIENT
  Age: 85 Year
  Sex: Male

DRUGS (2)
  1. PLAVIX [Suspect]
     Active Substance: CLOPIDOGREL BISULFATE
     Dosage: UNK
     Route: 048
  2. PLAVIX [Suspect]
     Active Substance: CLOPIDOGREL BISULFATE
     Indication: ARTERIAL STENOSIS
     Dosage: UNK
     Route: 048

REACTIONS (7)
  - Shock haemorrhagic [Recovered/Resolved]
  - Coagulation time prolonged [Unknown]
  - Inflammation [Unknown]
  - Blood glucose increased [Unknown]
  - Altered state of consciousness [Recovered/Resolved]
  - Arterial haemorrhage [Recovered/Resolved]
  - Anaemia [Unknown]
